FAERS Safety Report 12450967 (Version 8)
Quarter: 2017Q1

REPORT INFORMATION
  Report Type: Report from Study
  Country: DE (occurrence: DE)
  Receive Date: 20160609
  Receipt Date: 20170323
  Transmission Date: 20170428
  Serious: Yes (Death, Hospitalization, Other)
  Sender: FDA-Public Use
  Company Number: DE-CELGENEUS-DEU-2016056751

PATIENT
  Age: 66 Year
  Sex: Male

DRUGS (12)
  1. NOVAMINSULFON [Concomitant]
     Active Substance: METAMIZOLE
     Indication: PRODUCT USED FOR UNKNOWN INDICATION
     Dosage: 500 MILLIGRAM
     Route: 065
  2. TOREM [Concomitant]
     Active Substance: TORSEMIDE
     Indication: CARDIAC FAILURE
     Dosage: 10
     Route: 065
  3. ABRAXANE [Suspect]
     Active Substance: PACLITAXEL
     Dosage: CUMULATIVE DOSE: 375 MG
     Route: 041
     Dates: end: 20160525
  4. METOHEXAL [Concomitant]
     Active Substance: METOPROLOL SUCCINATE
     Indication: PRODUCT USED FOR UNKNOWN INDICATION
     Dosage: 50 MILLIGRAM
     Route: 065
  5. TAVOR (LORAZEPAM) [Concomitant]
     Active Substance: LORAZEPAM
     Indication: PRODUCT USED FOR UNKNOWN INDICATION
     Dosage: 1 MILLIGRAM
     Route: 065
  6. NOVALGIN [Concomitant]
     Active Substance: METAMIZOLE SODIUM
     Indication: PRODUCT USED FOR UNKNOWN INDICATION
     Route: 065
  7. ABRAXANE [Suspect]
     Active Substance: PACLITAXEL
     Indication: PANCREATIC CARCINOMA METASTATIC
     Route: 041
     Dates: start: 20160427, end: 20160518
  8. GEMCITABINE [Suspect]
     Active Substance: GEMCITABINE\GEMCITABINE HYDROCHLORIDE
     Indication: PANCREATIC CARCINOMA METASTATIC
     Route: 065
     Dates: end: 20160518
  9. PANTOPRAZOL [Concomitant]
     Active Substance: PANTOPRAZOLE SODIUM
     Indication: PRODUCT USED FOR UNKNOWN INDICATION
     Dosage: 80 MILLIGRAM
     Route: 065
  10. METOPROLOL. [Concomitant]
     Active Substance: METOPROLOL
     Indication: HYPERTENSION
     Dosage: 1.5
     Route: 065
  11. ULCOGANT [Concomitant]
     Active Substance: SUCRALFATE
     Indication: GASTRIC HAEMORRHAGE
     Dosage: SATCHET
     Route: 065
  12. PANTOZOL [Concomitant]
     Active Substance: PANTOPRAZOLE SODIUM
     Indication: GASTRIC HAEMORRHAGE
     Dosage: 10
     Route: 065

REACTIONS (4)
  - Blood disorder [Recovered/Resolved]
  - Enterococcal sepsis [Fatal]
  - Thrombotic thrombocytopenic purpura [Not Recovered/Not Resolved]
  - Diarrhoea [Not Recovered/Not Resolved]

NARRATIVE: CASE EVENT DATE: 20160429
